FAERS Safety Report 16613387 (Version 4)
Quarter: 2019Q4

REPORT INFORMATION
  Report Type: Report from Study
  Country: US (occurrence: US)
  Receive Date: 20190723
  Receipt Date: 20191004
  Transmission Date: 20200122
  Serious: Yes (Other)
  Sender: FDA-Public Use
  Company Number: US-AMGEN-USASP2019115402

PATIENT
  Age: 69 Year
  Sex: Male

DRUGS (5)
  1. ENBREL [Suspect]
     Active Substance: ETANERCEPT
     Indication: PSORIATIC ARTHROPATHY
     Dosage: 50 MILLIGRAM, QWK
     Route: 065
     Dates: start: 2007
  2. HARVONI [Concomitant]
     Active Substance: LEDIPASVIR\SOFOSBUVIR
     Indication: HEPATITIS C
     Dosage: UNK
  3. ENBREL [Suspect]
     Active Substance: ETANERCEPT
     Indication: RHEUMATOID ARTHRITIS
     Dosage: 50 MILLIGRAM, Q2WK
     Route: 065
  4. ENBREL [Suspect]
     Active Substance: ETANERCEPT
     Dosage: 50 MILLIGRAM, QWK
     Route: 065
     Dates: start: 2019
  5. ENBREL [Suspect]
     Active Substance: ETANERCEPT
     Dosage: 50 MILLIGRAM, Q3WK
     Route: 065
     Dates: end: 2019

REACTIONS (12)
  - Rotator cuff repair [Unknown]
  - Gastrooesophageal reflux disease [Unknown]
  - Rheumatoid arthritis [Unknown]
  - Intentional product misuse [Unknown]
  - Lyme disease [Unknown]
  - Ulcer haemorrhage [Unknown]
  - Hernia repair [Unknown]
  - Nephrolithiasis [Unknown]
  - Arthropod bite [Unknown]
  - Psoriatic arthropathy [Unknown]
  - Foot deformity [Unknown]
  - Bowel movement irregularity [Recovered/Resolved]

NARRATIVE: CASE EVENT DATE: 2019
